FAERS Safety Report 9095990 (Version 2)
Quarter: 2013Q1

REPORT INFORMATION
  Report Type: Spontaneous
  Country: US (occurrence: US)
  Receive Date: 20130207
  Receipt Date: 20130227
  Transmission Date: 20140127
  Serious: No
  Sender: FDA-Public Use
  Company Number: US-ROXANE LABORATORIES, INC.-2013-RO-00228RO

PATIENT
  Sex: Female
  Weight: 63 kg

DRUGS (1)
  1. CODEINE SULFATE [Suspect]

REACTIONS (2)
  - Nausea [Unknown]
  - Vomiting [Unknown]
